FAERS Safety Report 17753040 (Version 1)
Quarter: 2020Q2

REPORT INFORMATION
  Report Type: Spontaneous
  Country: FR (occurrence: FR)
  Receive Date: 20200506
  Receipt Date: 20200506
  Transmission Date: 20200714
  Serious: Yes (Other)
  Sender: FDA-Public Use
  Company Number: NVSC2020FR121060

PATIENT
  Age: 78 Year
  Sex: Male

DRUGS (4)
  1. ESBRIET [Suspect]
     Active Substance: PIRFENIDONE
     Indication: PULMONARY FIBROSIS
     Dosage: 2400 MG, QD
     Route: 048
     Dates: start: 201707
  2. ANSATIPINE [Suspect]
     Active Substance: RIFABUTIN
     Indication: PNEUMONIA
     Dosage: 150 MG, QD
     Route: 048
     Dates: start: 20191022
  3. PARACETAMOL [Suspect]
     Active Substance: ACETAMINOPHEN
     Indication: PAIN
     Dosage: 1 G, QD
     Route: 048
     Dates: start: 20191222, end: 20191224
  4. CLARITHROMYCINE EG [Suspect]
     Active Substance: CLARITHROMYCIN
     Indication: PNEUMONIA
     Dosage: 1000 MG, QD
     Route: 048
     Dates: start: 20191022

REACTIONS (2)
  - Cholestasis [Unknown]
  - Transaminases increased [Recovered/Resolved with Sequelae]

NARRATIVE: CASE EVENT DATE: 20191223
